FAERS Safety Report 20834942 (Version 2)
Quarter: 2022Q2

REPORT INFORMATION
  Report Type: Spontaneous
  Country: US (occurrence: US)
  Receive Date: 20220516
  Receipt Date: 20220620
  Transmission Date: 20220721
  Serious: No
  Sender: FDA-Public Use
  Company Number: US-PFIZER INC-202200702744

PATIENT
  Age: 88 Year
  Sex: Female
  Weight: 73.03 kg

DRUGS (6)
  1. XELJANZ XR [Suspect]
     Active Substance: TOFACITINIB CITRATE
     Indication: Rheumatoid arthritis
     Dosage: 11 MG, 1X/DAY
     Route: 048
  2. TOZINAMERAN [Suspect]
     Active Substance: TOZINAMERAN
     Indication: COVID-19 immunisation
     Dosage: UNK UNK, SINGLE (DOSE 1, SINGLE)
  3. TOZINAMERAN [Suspect]
     Active Substance: TOZINAMERAN
     Dosage: UNK UNK, SINGLE (DOSE 2, SINGLE)
  4. TOZINAMERAN [Suspect]
     Active Substance: TOZINAMERAN
     Dosage: UNK, SINGLE ((DOSE 3 SINGLE)
  5. FOLIC ACID [Concomitant]
     Active Substance: FOLIC ACID
     Dosage: UNK (TAKES IS 2 PILLS, FOLIC ACID)
  6. ATENOLOL [Concomitant]
     Active Substance: ATENOLOL
     Dosage: 25 MG, 1X/DAY

REACTIONS (2)
  - Musculoskeletal stiffness [Unknown]
  - Pain [Unknown]
